FAERS Safety Report 17129127 (Version 2)
Quarter: 2020Q1

REPORT INFORMATION
  Report Type: Spontaneous
  Country: US (occurrence: US)
  Receive Date: 20191209
  Receipt Date: 20200114
  Transmission Date: 20200409
  Serious: Yes (Hospitalization)
  Sender: FDA-Public Use
  Company Number: US-PFIZER INC-2017555067

PATIENT
  Age: 67 Year
  Sex: Male
  Weight: 128.3 kg

DRUGS (30)
  1. LYRICA [Suspect]
     Active Substance: PREGABALIN
     Indication: SCIATICA
     Dosage: 150 MG, TWICE A DAY
     Dates: start: 20171226
  2. LYRICA [Suspect]
     Active Substance: PREGABALIN
     Indication: NEUROPATHY PERIPHERAL
     Dosage: 150 MG, ONCE A DAY
     Route: 048
  3. LYRICA [Suspect]
     Active Substance: PREGABALIN
     Indication: CERVICAL SPINAL STENOSIS
  4. OMEPRAZOLE. [Concomitant]
     Active Substance: OMEPRAZOLE
     Indication: GASTROOESOPHAGEAL REFLUX DISEASE
     Dosage: 40 MG, 1X/DAY
     Route: 048
     Dates: start: 2012
  5. METFORMIN [Concomitant]
     Active Substance: METFORMIN HYDROCHLORIDE
     Indication: GLUCOSE TOLERANCE IMPAIRED
     Dosage: 500 MG, 2X/DAY
     Route: 048
     Dates: start: 201707
  6. PREDNISONE. [Concomitant]
     Active Substance: PREDNISONE
     Dosage: 5 MG, 2X/DAY
     Route: 048
     Dates: start: 1997
  7. LASIX [Concomitant]
     Active Substance: FUROSEMIDE
     Indication: FLUID RETENTION
     Dosage: 40 MG, 1X/DAY
     Route: 048
     Dates: start: 2012
  8. AMITIZA [Concomitant]
     Active Substance: LUBIPROSTONE
     Dosage: UNK, AS NEEDED
     Dates: start: 2018
  9. HYDROCOD/ACETAM [Concomitant]
     Indication: BACK PAIN
     Dosage: [HYDROCODONE 10MG]/[ACETAMINOPHEN 325MG] TABLET, FOUR TIMES A DAY AS NEEDED
     Route: 048
     Dates: start: 2012
  10. VITAMIN D3 [Concomitant]
     Active Substance: CHOLECALCIFEROL
     Dosage: 1000 IU, DAILY
     Dates: start: 2019
  11. LYRICA [Suspect]
     Active Substance: PREGABALIN
     Indication: NERVE COMPRESSION
     Dosage: 150MG, TWICE A DAY
     Route: 048
     Dates: start: 201711
  12. LYRICA [Suspect]
     Active Substance: PREGABALIN
     Indication: PAIN
     Dosage: UNK
     Dates: end: 20171224
  13. LYRICA [Suspect]
     Active Substance: PREGABALIN
     Indication: NEURALGIA
  14. PREDNISONE. [Concomitant]
     Active Substance: PREDNISONE
     Indication: ARTHRITIS
     Dosage: UNK, 1X/DAY (1 TO 2 TABS ONE TIME DAILY)
     Dates: start: 1995
  15. BACLOFEN. [Concomitant]
     Active Substance: BACLOFEN
     Indication: MUSCLE SPASMS
     Dosage: 10 MG, 3X/DAY
     Route: 048
     Dates: start: 201709
  16. OMEPRAZOLE DR [Concomitant]
     Active Substance: OMEPRAZOLE
     Dosage: 40 MG, DAILY
     Dates: start: 2012
  17. PRADAXA [Concomitant]
     Active Substance: DABIGATRAN ETEXILATE MESYLATE
     Indication: BLOOD DISORDER
     Dosage: 150 MG, 2X/DAY
     Dates: start: 2012
  18. ALENDRONATE [Concomitant]
     Active Substance: ALENDRONATE SODIUM
     Dosage: 70MG, ONE TABLET A WEEK
     Route: 048
     Dates: start: 201701
  19. POTASSIUM [Concomitant]
     Active Substance: POTASSIUM
     Indication: BLOOD POTASSIUM DECREASED
     Dosage: 10 MEQ, DAILY
     Route: 048
     Dates: start: 2015
  20. LORTAB [Concomitant]
     Active Substance: ACETAMINOPHEN\HYDROCODONE BITARTRATE
     Indication: PAIN
     Dosage: 1 DF, 4X/DAY [HYDROCODONE BITARTRATE: 10/ PARACETAMOL: 325]
  21. OMEGA 3 6 9 [Concomitant]
     Active Substance: FISH OIL
     Dosage: 1600 MG, DAILY
  22. HYDROCOD/ACETAM [Concomitant]
     Dosage: UNK
     Dates: start: 2017
  23. SIMVASTATIN. [Concomitant]
     Active Substance: SIMVASTATIN
     Indication: BLOOD CHOLESTEROL INCREASED
     Dosage: 20 MG, 1X/DAY
     Dates: start: 1999
  24. METFORMIN [Concomitant]
     Active Substance: METFORMIN HYDROCHLORIDE
     Dosage: 1000 MG, 2X/DAY
     Dates: start: 2018
  25. MAGNESIUM [Concomitant]
     Active Substance: MAGNESIUM
     Dosage: UNK
     Dates: start: 2019
  26. LYRICA [Suspect]
     Active Substance: PREGABALIN
     Indication: SPINAL STENOSIS
     Dosage: 150 MG, TWICE A DAY (TAKE TWO 75 IN THE MORNING AND TWO 75 AT NIGHT)
  27. SULINDAC. [Concomitant]
     Active Substance: SULINDAC
     Indication: PAIN
     Dosage: 200 MG, 2X/DAY
     Route: 048
     Dates: start: 201710
  28. METOPROLOL TARTRATE. [Concomitant]
     Active Substance: METOPROLOL TARTRATE
     Indication: CARDIAC DISORDER
     Dosage: 50 MG, 2X/DAY
     Route: 048
     Dates: start: 2012
  29. LISINOPRIL. [Concomitant]
     Active Substance: LISINOPRIL
     Indication: BLOOD PRESSURE ABNORMAL
     Dosage: 10 MG (1/2 TABLET), DAILY
     Route: 048
     Dates: start: 2010
  30. BUMETANIDE. [Concomitant]
     Active Substance: BUMETANIDE
     Dosage: 2 MG, DAILY
     Dates: start: 2019

REACTIONS (3)
  - Urinary tract infection [Recovered/Resolved]
  - Sepsis [Recovered/Resolved]
  - Pain [Recovered/Resolved]

NARRATIVE: CASE EVENT DATE: 20191126
